FAERS Safety Report 18739793 (Version 2)
Quarter: 2021Q1

REPORT INFORMATION
  Report Type: Report from Study
  Country: JP (occurrence: JP)
  Receive Date: 20210114
  Receipt Date: 20210210
  Transmission Date: 20210419
  Serious: Yes (Hospitalization, Other)
  Sender: FDA-Public Use
  Company Number: JP-ASTELLAS-2019JP021002

PATIENT
  Age: 12 Year
  Sex: Male
  Weight: 32 kg

DRUGS (17)
  1. CYTARABINE. [Suspect]
     Active Substance: CYTARABINE
     Dosage: 6G/M2/DAY, UNKNOWN FREQ.
     Route: 065
     Dates: start: 20190928, end: 20190928
  2. ASP2215 [Suspect]
     Active Substance: GILTERITINIB
     Indication: ACUTE MYELOID LEUKAEMIA REFRACTORY
     Route: 048
     Dates: start: 20190906, end: 20190923
  3. ETOPOSIDE. [Suspect]
     Active Substance: ETOPOSIDE
     Indication: ACUTE MYELOID LEUKAEMIA
     Dosage: 100 MG/M2/DAY, UNKNOWN FREQ.
     Route: 065
     Dates: start: 20190906, end: 20190907
  4. CYTARABINE. [Suspect]
     Active Substance: CYTARABINE
     Indication: ACUTE MYELOID LEUKAEMIA
     Dosage: 3G/M2/DAY, UNKNOWN FREQ.
     Route: 065
     Dates: start: 20190927, end: 20190927
  5. METHOTREXATE. [Concomitant]
     Active Substance: METHOTREXATE
     Indication: ACUTE MYELOID LEUKAEMIA
     Dosage: 12 MG/DAY, UNKNOWN FREQ.
     Route: 028
     Dates: start: 20190906, end: 20190906
  6. CYLOCIDE [Suspect]
     Active Substance: CYTARABINE
     Dosage: 30 MG/DAY, UNKNOWN FREQ.
     Route: 028
     Dates: start: 20191203, end: 20191203
  7. METHOTREXATE. [Concomitant]
     Active Substance: METHOTREXATE
     Dosage: 12 MG/DAY, UNKNOWN FREQ.
     Route: 028
     Dates: start: 20190927, end: 20190927
  8. SAXIZON [Concomitant]
     Active Substance: HYDROCORTISONE SODIUM SUCCINATE
     Dosage: 10 MG/DAY, UNKNOWN FREQ.
     Route: 028
     Dates: start: 20190927, end: 20190927
  9. CYLOCIDE [Suspect]
     Active Substance: CYTARABINE
     Indication: ACUTE MYELOID LEUKAEMIA
     Dosage: 6G/M2/DAY, UNKNOWN FREQ.
     Route: 065
     Dates: start: 20190906, end: 20190907
  10. CYLOCIDE [Suspect]
     Active Substance: CYTARABINE
     Dosage: 30 MG/DAY, UNKNOWN FREQ.
     Route: 028
     Dates: start: 20190927, end: 20190927
  11. METHOTREXATE. [Concomitant]
     Active Substance: METHOTREXATE
     Dosage: 12 MG/DAY, UNKNOWN FREQ.
     Route: 028
     Dates: start: 20191203, end: 20191203
  12. ASP2215 [Suspect]
     Active Substance: GILTERITINIB
     Route: 048
     Dates: start: 20191119
  13. CYLOCIDE [Suspect]
     Active Substance: CYTARABINE
     Indication: ACUTE MYELOID LEUKAEMIA
     Dosage: 30 MG/DAY, UNKNOWN FREQ.
     Route: 028
     Dates: start: 20190906, end: 20190906
  14. IDAMYCIN [Suspect]
     Active Substance: IDARUBICIN HYDROCHLORIDE
     Indication: ACUTE MYELOID LEUKAEMIA
     Dosage: 10 MG/M2/DAY, UNKNOWN FREQ.
     Route: 065
     Dates: start: 20190906, end: 20190906
  15. SAXIZON [Concomitant]
     Active Substance: HYDROCORTISONE SODIUM SUCCINATE
     Indication: ACUTE MYELOID LEUKAEMIA
     Dosage: 10 MG/DAY, UNKNOWN FREQ.
     Route: 028
     Dates: start: 20190906, end: 20190906
  16. SAXIZON [Concomitant]
     Active Substance: HYDROCORTISONE SODIUM SUCCINATE
     Dosage: 10 MG/DAY, UNKNOWN FREQ.
     Route: 028
     Dates: start: 20191203, end: 20191203
  17. ENDOXAN ASTA [Concomitant]
     Active Substance: CYCLOPHOSPHAMIDE
     Indication: ACUTE MYELOID LEUKAEMIA
     Dosage: 60 MG/KG/DAY, UNKNOWN FREQ.
     Route: 065
     Dates: start: 20190929, end: 20190930

REACTIONS (6)
  - Infection [Recovered/Resolved]
  - Erythema [Recovered/Resolved]
  - Myelosuppression [Recovered/Resolved]
  - Pyrexia [Recovered/Resolved]
  - Electrocardiogram QT prolonged [Recovered/Resolved]
  - Off label use [Unknown]

NARRATIVE: CASE EVENT DATE: 20190906
